FAERS Safety Report 6794008-9 (Version None)
Quarter: 2010Q2

REPORT INFORMATION
  Report Type: 
  Country: None (occurrence: None)
  Receive Date: 20100624
  Receipt Date: 20070706
  Transmission Date: 20101027
  Serious: No
  Sender: FDA-Public Use
  Company Number: JP-PFIZER INC-ENC200700098

PATIENT
  Age: 50 Year
  Sex: Male

DRUGS (1)
  1. ARGATROBAN [Suspect]
     Indication: HEPARIN-INDUCED THROMBOCYTOPENIA
     Dosage: FREQUENCY:  QD
     Route: 042

REACTIONS (1)
  - HAEMORRHAGE SUBCUTANEOUS [None]
